FAERS Safety Report 21188041 (Version 2)
Quarter: 2022Q3

REPORT INFORMATION
  Report Type: Spontaneous
  Country: GB (occurrence: GB)
  Receive Date: 20220809
  Receipt Date: 20220811
  Transmission Date: 20221026
  Serious: Yes (Life-Threatening, Hospitalization, Other)
  Sender: FDA-Public Use
  Company Number: GB-MLMSERVICE-20220721-3689937-1

PATIENT
  Age: 43 Year
  Sex: Female

DRUGS (3)
  1. MIRTAZAPINE [Suspect]
     Active Substance: MIRTAZAPINE
     Indication: Product used for unknown indication
     Dosage: UNK
     Route: 048
  2. OLANZAPINE [Suspect]
     Active Substance: OLANZAPINE
     Indication: Product used for unknown indication
     Dosage: UNK
     Route: 048
  3. DIAZEPAM [Suspect]
     Active Substance: DIAZEPAM
     Indication: Product used for unknown indication
     Dosage: UNK
     Route: 048

REACTIONS (7)
  - Ventricular tachycardia [Recovered/Resolved]
  - Intentional overdose [Recovered/Resolved]
  - Cardiac failure congestive [Recovered/Resolved]
  - Clonus [Recovered/Resolved]
  - Nystagmus [Recovered/Resolved]
  - Generalised tonic-clonic seizure [Recovered/Resolved]
  - Cardiogenic shock [Recovered/Resolved]
